FAERS Safety Report 6628245-0 (Version None)
Quarter: 2010Q1

REPORT INFORMATION
  Report Type: 
  Country: None (occurrence: None)
  Receive Date: 20100311
  Receipt Date: 20100226
  Transmission Date: 20100710
  Serious: Yes (Death, Other)
  Sender: FDA-Public Use
  Company Number: PHHY2010JP11496

PATIENT
  Sex: Male
  Weight: 67 kg

DRUGS (3)
  1. ICL670A ICL+DISTAB [Suspect]
     Indication: IRON OVERLOAD
     Dosage: 500 MG DAILY
     Route: 048
     Dates: start: 20090423, end: 20090614
  2. ICL670A ICL+DISTAB [Suspect]
     Indication: MYELODYSPLASTIC SYNDROME
     Dosage: 1000 MG DAILY
     Route: 048
     Dates: start: 20090615, end: 20091023
  3. RED BLOOD CELLS [Concomitant]
     Dosage: 2 UNITS EVERY WEEK
     Dates: start: 20081009, end: 20091023

REACTIONS (3)
  - DEATH [None]
  - GAMMA-GLUTAMYLTRANSFERASE INCREASED [None]
  - MALIGNANT NEOPLASM PROGRESSION [None]
